FAERS Safety Report 7864559-4 (Version None)
Quarter: 2011Q4

REPORT INFORMATION
  Report Type: 
  Country: None (occurrence: None)
  Receive Date: 20111028
  Receipt Date: 20111025
  Transmission Date: 20120403
  Serious: Yes (Other)
  Sender: FDA-Public Use
  Company Number: US-PFIZER INC-2011260449

PATIENT
  Sex: Female

DRUGS (2)
  1. TEGRETOL [Suspect]
     Indication: CONVULSION
     Dosage: UNK
  2. NEURONTIN [Suspect]
     Indication: CONVULSION
     Dosage: UNK

REACTIONS (4)
  - FATIGUE [None]
  - DIPLOPIA [None]
  - SENSATION OF HEAVINESS [None]
  - AGGRESSION [None]
